FAERS Safety Report 21339590 (Version 2)
Quarter: 2022Q4

REPORT INFORMATION
  Report Type: Spontaneous
  Country: US (occurrence: US)
  Receive Date: 20220915
  Receipt Date: 20221006
  Transmission Date: 20230113
  Serious: No
  Sender: FDA-Public Use
  Company Number: US-SA-SAC20220913001264

PATIENT
  Age: 11 Year
  Sex: Female
  Weight: 66.22 kg

DRUGS (7)
  1. DUPIXENT [Suspect]
     Active Substance: DUPILUMAB
     Indication: Eosinophilic oesophagitis
     Dosage: 300 MG, QW
     Route: 058
     Dates: start: 202206
  2. DUPIXENT [Suspect]
     Active Substance: DUPILUMAB
     Indication: Illness
  3. FERROUS SULFATE [Concomitant]
     Active Substance: FERROUS SULFATE
  4. COLACE [Concomitant]
     Active Substance: DOCUSATE SODIUM
  5. MELATONIN [Concomitant]
     Active Substance: MELATONIN
  6. CLONIDINE HYDROCHLORIDE [Concomitant]
     Active Substance: CLONIDINE HYDROCHLORIDE
  7. STRATTERA [Concomitant]
     Active Substance: ATOMOXETINE HYDROCHLORIDE

REACTIONS (6)
  - Injury associated with device [Unknown]
  - Needle issue [Unknown]
  - Constipation [Unknown]
  - Weight increased [Unknown]
  - Fatigue [Unknown]
  - Product use issue [Unknown]

NARRATIVE: CASE EVENT DATE: 20220101
